FAERS Safety Report 8195690-4 (Version None)
Quarter: 2012Q1

REPORT INFORMATION
  Report Type: 
  Country: None (occurrence: None)
  Receive Date: 20120308
  Receipt Date: 20120302
  Transmission Date: 20120608
  Serious: Yes (Other)
  Sender: FDA-Public Use
  Company Number: GB-PFIZER INC-2012009094

PATIENT
  Age: 59 Year
  Sex: Male

DRUGS (8)
  1. VARENICLINE TARTRATE [Suspect]
     Dosage: UNK
     Dates: start: 20090101
  2. VARENICLINE TARTRATE [Suspect]
     Dosage: UNK
     Dates: start: 20110101, end: 20120101
  3. SIMVASTATIN [Concomitant]
     Indication: HYPERTENSION
     Dosage: 40 MG, UNK
     Dates: start: 20080101
  4. VARENICLINE TARTRATE [Suspect]
     Indication: SMOKING CESSATION THERAPY
     Dosage: UNK
     Dates: start: 20070101
  5. VARENICLINE TARTRATE [Suspect]
     Dosage: 1 MG, UNK
     Dates: start: 20080101
  6. VARENICLINE TARTRATE [Suspect]
     Dosage: UNK
     Dates: start: 20100101
  7. IRBESARTAN [Concomitant]
     Indication: BLOOD CHOLESTEROL INCREASED
     Dosage: 150 MG, UNK
     Dates: start: 20080101
  8. OMEPRAZOLE [Concomitant]
     Indication: GASTROOESOPHAGEAL REFLUX DISEASE
     Dosage: 10 MG, UNK
     Dates: start: 20110101

REACTIONS (6)
  - DRUG ABUSE [None]
  - LOWER RESPIRATORY TRACT INFECTION [None]
  - MEDICATION ERROR [None]
  - DRUG PRESCRIBING ERROR [None]
  - DRUG INEFFECTIVE [None]
  - INCORRECT DRUG ADMINISTRATION DURATION [None]
